FAERS Safety Report 6035761-1 (Version None)
Quarter: 2009Q1

REPORT INFORMATION
  Report Type: 
  Country: None (occurrence: None)
  Receive Date: 20090112
  Receipt Date: 20090112
  Transmission Date: 20090719
  Serious: No
  Sender: FDA-Public Use
  Company Number: None

PATIENT
  Age: 44 Year
  Sex: Female
  Weight: 74.8435 kg

DRUGS (2)
  1. AVELOX [Suspect]
     Indication: SINUSITIS
     Dosage: 1 TABLET EVERY DAY PO
     Route: 048
     Dates: start: 20081223, end: 20081225
  2. AVELOX [Suspect]
     Indication: SINUSITIS
     Dosage: 1 TABLET EVERY DAY PO
     Route: 048
     Dates: start: 20081227, end: 20081229

REACTIONS (8)
  - ABDOMINAL PAIN UPPER [None]
  - AMNESIA [None]
  - ANOREXIA [None]
  - DISTURBANCE IN ATTENTION [None]
  - DIZZINESS [None]
  - DYSGEUSIA [None]
  - NAUSEA [None]
  - RECTAL HAEMORRHAGE [None]
